FAERS Safety Report 21728653 (Version 6)
Quarter: 2023Q2

REPORT INFORMATION
  Report Type: Report from Study
  Country: US (occurrence: US)
  Receive Date: 20221214
  Receipt Date: 20230421
  Transmission Date: 20230722
  Serious: Yes (Hospitalization, Other)
  Sender: FDA-Public Use
  Company Number: US-002147023-NVSC2022US289425

PATIENT
  Sex: Female
  Weight: 102.04 kg

DRUGS (26)
  1. KESIMPTA [Suspect]
     Active Substance: OFATUMUMAB
     Indication: Diabetic coma
     Dosage: 20 MG, QMO (AT WEEK 4 AND THEN ONCE MONTHLY THEREAFTER)
     Route: 058
     Dates: start: 20210804
  2. KESIMPTA [Suspect]
     Active Substance: OFATUMUMAB
     Indication: Bipolar disorder
  3. KESIMPTA [Suspect]
     Active Substance: OFATUMUMAB
     Indication: Asthma
  4. KESIMPTA [Suspect]
     Active Substance: OFATUMUMAB
     Indication: Multiple sclerosis
  5. METFORMIN HYDROCHLORIDE [Concomitant]
     Active Substance: METFORMIN HYDROCHLORIDE
     Indication: Product used for unknown indication
     Route: 065
  6. LANTUS [Concomitant]
     Active Substance: INSULIN GLARGINE
     Indication: Product used for unknown indication
     Dosage: UNK
     Route: 065
  7. GABAPENTIN [Concomitant]
     Active Substance: GABAPENTIN
     Indication: Product used for unknown indication
     Dosage: 300 MG, TID
     Route: 048
  8. GABAPENTIN [Concomitant]
     Active Substance: GABAPENTIN
     Dosage: 300 MG, QHS (ONCE A DAY)
     Route: 048
  9. GABAPENTIN [Concomitant]
     Active Substance: GABAPENTIN
     Dosage: 100 MG (IN MORNING)
     Route: 048
  10. GABAPENTIN [Concomitant]
     Active Substance: GABAPENTIN
     Dosage: 100 MG (IN LUNCH)
     Route: 048
  11. GABAPENTIN [Concomitant]
     Active Substance: GABAPENTIN
     Dosage: 300 MG (IN NIGHT)
     Route: 048
  12. REQUIP [Concomitant]
     Active Substance: ROPINIROLE HYDROCHLORIDE
     Indication: Product used for unknown indication
     Dosage: 0.5 MG, QD (1 TO 3 HOURS BEFORE BED TIME)
     Route: 048
  13. REQUIP [Concomitant]
     Active Substance: ROPINIROLE HYDROCHLORIDE
     Dosage: 0.25 MG (AT EVENING)
     Route: 065
  14. REQUIP [Concomitant]
     Active Substance: ROPINIROLE HYDROCHLORIDE
     Dosage: 2 MG, QD (AT BED TIME)
     Route: 048
  15. REQUIP [Concomitant]
     Active Substance: ROPINIROLE HYDROCHLORIDE
     Dosage: 0.25 MG (IN MORNING)
     Route: 065
  16. REQUIP [Concomitant]
     Active Substance: ROPINIROLE HYDROCHLORIDE
     Dosage: 0.25 MG (AT LUNCH TIME)
     Route: 065
  17. REQUIP [Concomitant]
     Active Substance: ROPINIROLE HYDROCHLORIDE
     Dosage: 0.25 MG (AT BED TIME)
     Route: 065
  18. REQUIP [Concomitant]
     Active Substance: ROPINIROLE HYDROCHLORIDE
     Dosage: 1 MG, QD  (AT BED TIME)
     Route: 048
  19. VIMPAT [Concomitant]
     Active Substance: LACOSAMIDE
     Indication: Product used for unknown indication
     Dosage: 150 MG, BID
     Route: 065
  20. VIMPAT [Concomitant]
     Active Substance: LACOSAMIDE
     Dosage: 150 MG, TID
     Route: 065
  21. VIMPAT [Concomitant]
     Active Substance: LACOSAMIDE
     Dosage: 150 MG, BID
     Route: 065
  22. DEPAKOTE [Concomitant]
     Active Substance: DIVALPROEX SODIUM
     Indication: Product used for unknown indication
     Dosage: 250 MG, TID
     Route: 048
  23. DEPAKOTE [Concomitant]
     Active Substance: DIVALPROEX SODIUM
     Dosage: 1 DOSAGE FORM, QD
     Route: 048
  24. DEPAKOTE [Concomitant]
     Active Substance: DIVALPROEX SODIUM
     Dosage: 1 DOSAGE FORM, BID
     Route: 048
  25. IBUPROFEN [Concomitant]
     Active Substance: IBUPROFEN
     Indication: Product used for unknown indication
     Dosage: 1 DOSAGE FORM, PRN (WITH FOOD OR MILK AS NEEDED EVERY 8 HOURS)
     Route: 048
  26. COPAXONE [Concomitant]
     Active Substance: GLATIRAMER ACETATE
     Indication: Product used for unknown indication
     Dosage: 20 MG, QD
     Route: 065

REACTIONS (22)
  - Multiple sclerosis relapse [Recovering/Resolving]
  - Seizure [Recovering/Resolving]
  - Seizure [Recovered/Resolved]
  - Pharyngeal swelling [Unknown]
  - Cough [Unknown]
  - Pruritus [Unknown]
  - Malaise [Recovering/Resolving]
  - Dyspnoea [Unknown]
  - Depression [Unknown]
  - Fall [Recovering/Resolving]
  - Face injury [Recovering/Resolving]
  - Tooth injury [Recovering/Resolving]
  - Arthralgia [Recovering/Resolving]
  - Restless legs syndrome [Recovering/Resolving]
  - Asthenia [Recovering/Resolving]
  - Fatigue [Recovering/Resolving]
  - Back pain [Recovering/Resolving]
  - Dyskinesia [Recovering/Resolving]
  - Neck pain [Unknown]
  - Blood pressure abnormal [Unknown]
  - Product use in unapproved indication [Unknown]
  - Product supply issue [Unknown]
